FAERS Safety Report 10756187 (Version 11)
Quarter: 2015Q3

REPORT INFORMATION
  Report Type: Report from Study
  Country: US (occurrence: US)
  Receive Date: 20150202
  Receipt Date: 20150831
  Transmission Date: 20151125
  Serious: Yes (Other)
  Sender: FDA-Public Use
  Company Number: US-SA-2015SA010998

PATIENT
  Age: 61 Year
  Sex: Female
  Weight: 76.2 kg

DRUGS (10)
  1. AUBAGIO [Suspect]
     Active Substance: TERIFLUNOMIDE
     Indication: MULTIPLE SCLEROSIS
     Route: 048
     Dates: start: 20150111
  2. AUBAGIO [Suspect]
     Active Substance: TERIFLUNOMIDE
     Indication: CERVICAL SPINAL STENOSIS
     Route: 048
     Dates: start: 20150111
  3. LEVOTHYROXINE. [Concomitant]
     Active Substance: LEVOTHYROXINE
     Indication: HYPOTHYROIDISM
  4. AUBAGIO [Suspect]
     Active Substance: TERIFLUNOMIDE
     Indication: RELAPSING-REMITTING MULTIPLE SCLEROSIS
     Route: 048
     Dates: start: 20150111
  5. ATENOLOL. [Concomitant]
     Active Substance: ATENOLOL
     Indication: MITRAL VALVE PROLAPSE
     Dosage: START DATE 1980^S
  6. EXCEDRIN [Concomitant]
     Active Substance: ACETAMINOPHEN\ASPIRIN\CAFFEINE
     Indication: SINUS DISORDER
  7. AUBAGIO [Suspect]
     Active Substance: TERIFLUNOMIDE
     Indication: PROGRESSIVE MULTIPLE SCLEROSIS
     Route: 048
     Dates: start: 20150111
  8. XANAX [Concomitant]
     Active Substance: ALPRAZOLAM
  9. LEVOTHYROXINE. [Concomitant]
     Active Substance: LEVOTHYROXINE
     Indication: HYPOTHYROIDISM
  10. EXCEDRIN [Concomitant]
     Active Substance: ACETAMINOPHEN\ASPIRIN\CAFFEINE
     Indication: HEADACHE

REACTIONS (35)
  - Hypersensitivity [Unknown]
  - Urinary incontinence [Unknown]
  - Muscle spasms [Unknown]
  - White matter lesion [Unknown]
  - Diplopia [Recovered/Resolved]
  - Pain in extremity [Unknown]
  - Fatigue [Not Recovered/Not Resolved]
  - Urinary tract infection [Recovered/Resolved]
  - Memory impairment [Unknown]
  - Musculoskeletal discomfort [Unknown]
  - Asthenia [Unknown]
  - Hypertension [Unknown]
  - Hepatic enzyme increased [Unknown]
  - Weight increased [Unknown]
  - Impaired work ability [Unknown]
  - Hypoaesthesia [Unknown]
  - Arthralgia [Unknown]
  - Alopecia [Unknown]
  - Muscle strain [Unknown]
  - Plantar fasciitis [Unknown]
  - Mobility decreased [Recovering/Resolving]
  - Dyspepsia [Recovering/Resolving]
  - Pain [Unknown]
  - Paraesthesia [Unknown]
  - Balance disorder [Unknown]
  - Sleep disorder [Recovering/Resolving]
  - Malaise [Unknown]
  - Nasopharyngitis [Unknown]
  - Head discomfort [Recovering/Resolving]
  - Memory impairment [Unknown]
  - Vitamin D decreased [Recovering/Resolving]
  - Gastrointestinal disorder [Unknown]
  - Ill-defined disorder [Unknown]
  - Dyspnoea [Unknown]
  - Bladder disorder [Unknown]

NARRATIVE: CASE EVENT DATE: 2015
